FAERS Safety Report 8837842 (Version 1)
Quarter: 2012Q4

REPORT INFORMATION
  Report Type: 
  Country: US (occurrence: US)
  Receive Date: 20121012
  Receipt Date: 20121012
  Transmission Date: 20130627
  Serious: No
  Sender: FDA-Public Use
  Company Number: US-009507513-1210USA003554

PATIENT
  Sex: Female
  Weight: 113.38 kg

DRUGS (1)
  1. IMPLANON [Suspect]
     Indication: CONTRACEPTION
     Dosage: UNK
     Route: 059
     Dates: start: 20110120

REACTIONS (3)
  - Medical device complication [Unknown]
  - Device dislocation [Unknown]
  - No adverse event [Unknown]
